FAERS Safety Report 8364442-4 (Version None)
Quarter: 2012Q2

REPORT INFORMATION
  Report Type: 
  Country: None (occurrence: None)
  Receive Date: 20120516
  Receipt Date: 20120510
  Transmission Date: 20120825
  Serious: Yes (Death, Life-Threatening, Hospitalization, Other)
  Sender: FDA-Public Use
  Company Number: NL-ASTRAZENECA-2012SE28061

PATIENT
  Age: 25004 Day
  Sex: Male

DRUGS (23)
  1. PANTOPRAZOLE [Concomitant]
     Indication: HYPERCHLORHYDRIA
     Route: 048
  2. SIMVASTATIN [Concomitant]
     Indication: HYPERCHOLESTEROLAEMIA
     Route: 048
     Dates: end: 20120425
  3. HYDROCORTISONE [Concomitant]
     Indication: NERVOUS SYSTEM DISORDER
     Route: 042
     Dates: start: 20120424, end: 20120425
  4. MORPHINE [Concomitant]
     Indication: PAIN
     Route: 042
     Dates: start: 20120423, end: 20120424
  5. SMOFKABIVEN [Concomitant]
     Indication: NUTRITIONAL SUPPORT
     Route: 042
     Dates: start: 20120425, end: 20120426
  6. FRAXIPARINE [Concomitant]
     Indication: THROMBOSIS PROPHYLAXIS
     Route: 058
     Dates: start: 20120423, end: 20120424
  7. FUROSEMIDE [Concomitant]
     Indication: DIURETIC THERAPY
     Route: 042
     Dates: start: 20120424, end: 20120426
  8. MOVICOLON [Concomitant]
     Indication: CONSTIPATION
     Route: 048
     Dates: start: 20120423, end: 20120425
  9. METRONIDAZOLE [Concomitant]
     Indication: INFECTION
     Route: 042
     Dates: start: 20120423, end: 20120425
  10. PRIMPERAN TAB [Concomitant]
     Indication: NAUSEA
     Route: 042
     Dates: start: 20120423
  11. ASPIRIN [Concomitant]
     Route: 048
     Dates: end: 20120425
  12. ASPIRIN [Concomitant]
     Route: 042
     Dates: start: 20120423, end: 20120423
  13. ACETAMINOPHEN [Concomitant]
     Indication: PAIN
     Route: 042
     Dates: start: 20120423, end: 20120423
  14. FENTANYL-100 [Concomitant]
     Indication: PAIN
     Route: 042
     Dates: start: 20120423, end: 20120423
  15. CEFUROXIME [Concomitant]
     Indication: INFECTION
     Route: 042
     Dates: start: 20120423, end: 20120425
  16. PROPOFOL [Concomitant]
     Indication: PAIN
     Route: 042
     Dates: start: 20120423, end: 20120425
  17. METOPROLOL TARTRATE [Concomitant]
     Indication: HYPERTENSION
     Route: 048
     Dates: end: 20120423
  18. ZOFIL [Concomitant]
     Indication: CORONARY ARTERY DISEASE
     Route: 048
  19. ASPEGIC 1000 [Concomitant]
     Indication: CORONARY ARTERY DISEASE
     Route: 042
     Dates: start: 20120423, end: 20120423
  20. MIDAZOLAM [Concomitant]
     Indication: MUSCLE RELAXANT THERAPY
     Route: 042
     Dates: start: 20120423, end: 20120423
  21. AZD6140 [Suspect]
     Indication: CORONARY ARTERY DISEASE
     Route: 048
     Dates: start: 20110701
  22. FINASTERIDE AUROBINDO [Concomitant]
     Indication: BENIGN PROSTATIC HYPERPLASIA
     Route: 048
     Dates: end: 20120425
  23. FLUMAZENIL [Concomitant]
     Indication: DRUG TOXICITY PROPHYLAXIS
     Route: 042
     Dates: start: 20120423, end: 20120423

REACTIONS (5)
  - ILIAC ARTERY OCCLUSION [None]
  - INTESTINAL ISCHAEMIA [None]
  - ULCER HAEMORRHAGE [None]
  - GASTRIC ULCER [None]
  - RENAL FAILURE [None]
